FAERS Safety Report 10578633 (Version 1)
Quarter: 2014Q4

REPORT INFORMATION
  Report Type: Spontaneous
  Country: GB (occurrence: GB)
  Receive Date: 20141112
  Receipt Date: 20141112
  Transmission Date: 20150529
  Serious: Yes (Hospitalization, Other)
  Sender: FDA-Public Use
  Company Number: GB-TEVA-521145ISR

PATIENT
  Age: 18 Year
  Sex: Male

DRUGS (1)
  1. FLUOXETINE [Suspect]
     Active Substance: FLUOXETINE\FLUOXETINE HYDROCHLORIDE
     Indication: DEPRESSION
     Route: 048
     Dates: start: 20141018, end: 20141027

REACTIONS (3)
  - Troponin increased [Unknown]
  - Palpitations [Unknown]
  - Arrhythmia [Recovering/Resolving]

NARRATIVE: CASE EVENT DATE: 20141023
